FAERS Safety Report 7951878-6 (Version None)
Quarter: 2011Q4

REPORT INFORMATION
  Report Type: 
  Country: None (occurrence: None)
  Receive Date: 20111201
  Receipt Date: 20111201
  Transmission Date: 20120403
  Serious: No
  Sender: FDA-Public Use
  Company Number: None

PATIENT
  Age: 43 Year
  Sex: Female
  Weight: 127 kg

DRUGS (1)
  1. CYMBALTA [Suspect]
     Indication: FIBROMYALGIA
     Dosage: 60 MG
     Route: 048
     Dates: start: 20100615, end: 20111122

REACTIONS (11)
  - GAIT DISTURBANCE [None]
  - THINKING ABNORMAL [None]
  - DIARRHOEA [None]
  - MIGRAINE [None]
  - DIZZINESS [None]
  - NIGHTMARE [None]
  - INSOMNIA [None]
  - NAUSEA [None]
  - DRUG DISPENSING ERROR [None]
  - PARAESTHESIA [None]
  - DRUG WITHDRAWAL SYNDROME [None]
